FAERS Safety Report 21581250 (Version 1)
Quarter: 2022Q4

REPORT INFORMATION
  Report Type: Other
  Country: US (occurrence: None)
  Receive Date: 20221111
  Receipt Date: 20221111
  Transmission Date: 20230113
  Serious: Yes (Other)
  Sender: FDA-Public Use
  Company Number: US-ROCHE-3197499

PATIENT
  Age: 82 Year
  Sex: Female

DRUGS (13)
  1. VABYSMO [Suspect]
     Active Substance: FARICIMAB-SVOA
     Indication: Neovascular age-related macular degeneration
     Dosage: LAST DATE OF INJECTION 04/OCT/2022
     Route: 050
     Dates: start: 20221004, end: 20221004
  2. AVASTIN [Suspect]
     Active Substance: BEVACIZUMAB
     Indication: Product used for unknown indication
     Route: 065
  3. LUCENTIS [Suspect]
     Active Substance: RANIBIZUMAB
     Indication: Product used for unknown indication
     Route: 065
  4. VANCOMYCIN [Concomitant]
     Active Substance: VANCOMYCIN
  5. CEFTAZIDIME [Concomitant]
     Active Substance: CEFTAZIDIME
  6. COMBIGAN [Concomitant]
     Active Substance: BRIMONIDINE TARTRATE\TIMOLOL MALEATE
  7. TOBRADEX [Concomitant]
     Active Substance: DEXAMETHASONE\TOBRAMYCIN
  8. CIPROFLOXACIN [Concomitant]
     Active Substance: CIPROFLOXACIN
  9. MOBIC [Concomitant]
     Active Substance: MELOXICAM
  10. DUREZOL [Concomitant]
     Active Substance: DIFLUPREDNATE
  11. MEDROL [Concomitant]
     Active Substance: METHYLPREDNISOLONE
  12. ZOLPIDEM [Concomitant]
     Active Substance: ZOLPIDEM TARTRATE
  13. MELOXICAM [Concomitant]
     Active Substance: MELOXICAM

REACTIONS (5)
  - Endophthalmitis [Unknown]
  - Uveitis [Unknown]
  - Inflammation [Unknown]
  - Visual impairment [Not Recovered/Not Resolved]
  - Off label use [Unknown]

NARRATIVE: CASE EVENT DATE: 20221005
